FAERS Safety Report 20327490 (Version 5)
Quarter: 2022Q2

REPORT INFORMATION
  Report Type: Other
  Country: US (occurrence: None)
  Receive Date: 20220112
  Receipt Date: 20220408
  Transmission Date: 20220721
  Serious: Yes (Other)
  Sender: FDA-Public Use
  Company Number: US-ROCHE-2867023

PATIENT
  Sex: Male

DRUGS (15)
  1. ESBRIET [Suspect]
     Active Substance: PIRFENIDONE
     Indication: Pulmonary fibrosis
     Dosage: TAKE 3 CAPSULE(S) BY MOUTH 3 TIMES A DAY WITH FOOD
     Route: 048
     Dates: start: 201609
  2. ESBRIET [Suspect]
     Active Substance: PIRFENIDONE
     Indication: Idiopathic interstitial pneumonia
  3. ESBRIET [Suspect]
     Active Substance: PIRFENIDONE
     Indication: Hypoxia
  4. ESBRIET [Suspect]
     Active Substance: PIRFENIDONE
     Indication: Gastrooesophageal reflux disease
  5. ESBRIET [Suspect]
     Active Substance: PIRFENIDONE
     Indication: Dyspnoea
  6. ESBRIET [Suspect]
     Active Substance: PIRFENIDONE
     Indication: Blindness
  7. ESBRIET [Suspect]
     Active Substance: PIRFENIDONE
     Indication: Visual impairment
  8. DORZOLAMIDE [Concomitant]
     Active Substance: DORZOLAMIDE
  9. PREDNISOLONE [Concomitant]
     Active Substance: PREDNISOLONE
  10. FAMOTIDINE [Concomitant]
     Active Substance: FAMOTIDINE
  11. NAC 600 [Concomitant]
  12. FISH OIL [Concomitant]
     Active Substance: FISH OIL
  13. IPRATROPIUM [Concomitant]
     Active Substance: IPRATROPIUM
  14. BUDESONIDE [Concomitant]
     Active Substance: BUDESONIDE
  15. PREDNISONE [Concomitant]
     Active Substance: PREDNISONE

REACTIONS (8)
  - Blindness unilateral [Unknown]
  - Visual impairment [Recovered/Resolved]
  - Lung disorder [Unknown]
  - Visual impairment [Unknown]
  - Fatigue [Unknown]
  - Somnolence [Unknown]
  - Snoring [Unknown]
  - Sleep apnoea syndrome [Unknown]
